FAERS Safety Report 26099064 (Version 1)
Quarter: 2025Q4

REPORT INFORMATION
  Report Type: Spontaneous
  Country: US (occurrence: US)
  Receive Date: 20251128
  Receipt Date: 20251128
  Transmission Date: 20260118
  Serious: No
  Sender: NOVARTIS
  Company Number: US-002147023-NVSC2025US181920

PATIENT
  Sex: Male

DRUGS (1)
  1. COSENTYX [Suspect]
     Active Substance: SECUKINUMAB
     Indication: Product used for unknown indication
     Dosage: UNK (FREQUENCY: INJECT 2 PENS  UNDER THE SKIN ONCE WEEKLY FOR 5 WEEKS (WEEKS 0, 1, 2, 3, AND 4), THE
     Route: 065

REACTIONS (5)
  - Inappropriate schedule of product administration [Unknown]
  - Device malfunction [Unknown]
  - Device deployment issue [Unknown]
  - Scratch [Unknown]
  - Product administered at inappropriate site [Unknown]
